FAERS Safety Report 7508110-7 (Version None)
Quarter: 2011Q2

REPORT INFORMATION
  Report Type: 
  Country: None (occurrence: None)
  Receive Date: 20110527
  Receipt Date: 20110506
  Transmission Date: 20111010
  Serious: Yes (Other)
  Sender: FDA-Public Use
  Company Number: US-BAYER-201039278NA

PATIENT
  Age: 30 Year
  Sex: Female
  Weight: 68 kg

DRUGS (10)
  1. UNCODEABLE ^UNCLASSIFIABLE^ [Concomitant]
     Dosage: 25 MG, PRN
     Route: 048
  2. PULMICORT [Concomitant]
  3. ULTRACET [Concomitant]
  4. XANAX [Concomitant]
     Dosage: 0.25 MG, PRN
     Route: 048
     Dates: start: 20080703
  5. PROMETHAZINE HYDROCHLORIDE [Concomitant]
     Dosage: 25 MG, PRN
     Route: 048
     Dates: start: 20080703
  6. ROBINUL [Concomitant]
     Dosage: 2 MG, BID
     Route: 048
     Dates: start: 20080805
  7. SPIRONOLACTONE [Concomitant]
     Dosage: 25 MG, QD
     Route: 048
     Dates: start: 20080826
  8. ACETAMINOPHEN AND TRAMADOL HCL [Concomitant]
     Indication: PAIN
     Dosage: 325 MG, PRN
     Route: 048
     Dates: start: 20080703
  9. YAZ [Suspect]
     Indication: PRODUCT USED FOR UNKNOWN INDICATION
     Dosage: UNK
     Route: 048
     Dates: start: 20070101, end: 20080101
  10. CARDIZEM LA [Concomitant]
     Dosage: 360 MG, QD
     Route: 048
     Dates: start: 20080909, end: 20081007

REACTIONS (6)
  - CHOLECYSTITIS [None]
  - GALLBLADDER CHOLESTEROLOSIS [None]
  - PAIN [None]
  - BLOOD PRESSURE INCREASED [None]
  - SALPINGITIS [None]
  - ABDOMINAL PAIN UPPER [None]
